FAERS Safety Report 11572159 (Version 2)
Quarter: 2015Q4

REPORT INFORMATION
  Report Type: Spontaneous
  Country: US (occurrence: US)
  Receive Date: 20150916
  Receipt Date: 20151027
  Transmission Date: 20160304
  Serious: No
  Sender: FDA-Public Use
  Company Number: US-ELI_LILLY_AND_COMPANY-US200910002342

PATIENT
  Age: 69 Year
  Sex: Female

DRUGS (2)
  1. FORTEO [Suspect]
     Active Substance: TERIPARATIDE
     Dosage: 20 UG, DAILY (1/D)
  2. FORTEO [Suspect]
     Active Substance: TERIPARATIDE
     Indication: OSTEOPOROSIS
     Dosage: 20 UG, DAILY (1/D)
     Dates: start: 200907

REACTIONS (10)
  - Bone pain [Unknown]
  - Pain in extremity [Unknown]
  - Blood calcium decreased [Unknown]
  - Injection site irritation [Unknown]
  - Pain [Unknown]
  - Arthralgia [Unknown]
  - Myalgia [Unknown]
  - Injection site erythema [Unknown]
  - Polymyalgia rheumatica [Unknown]
  - Drug dose omission [Unknown]

NARRATIVE: CASE EVENT DATE: 200909
